FAERS Safety Report 25545181 (Version 1)
Quarter: 2025Q3

REPORT INFORMATION
  Report Type: Spontaneous
  Country: EU (occurrence: EU)
  Receive Date: 20250711
  Receipt Date: 20250711
  Transmission Date: 20251021
  Serious: Yes (Other)
  Sender: MYLAN
  Company Number: EU-UCBSA-2025011329

PATIENT

DRUGS (5)
  1. LEVETIRACETAM [Suspect]
     Active Substance: LEVETIRACETAM
     Indication: Epilepsy
  2. LACOSAMIDE [Suspect]
     Active Substance: LACOSAMIDE
     Indication: Epilepsy
  3. LAMOTRIGINE [Suspect]
     Active Substance: LAMOTRIGINE
     Indication: Epilepsy
  4. VALPROIC ACID [Suspect]
     Active Substance: VALPROIC ACID
     Indication: Epilepsy
  5. ESLICARBAZEPINE ACETATE [Suspect]
     Active Substance: ESLICARBAZEPINE ACETATE
     Indication: Epilepsy

REACTIONS (22)
  - Multiple-drug resistance [Unknown]
  - Oral disorder [Unknown]
  - Weight increased [Unknown]
  - Restlessness [Unknown]
  - Sleep disorder [Unknown]
  - Skin disorder [Unknown]
  - Somnolence [Unknown]
  - Disturbance in attention [Unknown]
  - Memory impairment [Unknown]
  - Fatigue [Unknown]
  - Nervousness [Unknown]
  - Depression [Unknown]
  - Balance disorder [Unknown]
  - Aggression [Unknown]
  - Headache [Unknown]
  - Vision blurred [Unknown]
  - Abdominal discomfort [Unknown]
  - Tremor [Unknown]
  - Alopecia [Unknown]
  - Dizziness [Unknown]
  - Agitation [Unknown]
  - Diplopia [Unknown]
